FAERS Safety Report 18187246 (Version 4)
Quarter: 2021Q4

REPORT INFORMATION
  Report Type: Spontaneous
  Country: US (occurrence: US)
  Receive Date: 20200824
  Receipt Date: 20211116
  Transmission Date: 20220303
  Serious: Yes (Death)
  Sender: FDA-Public Use
  Company Number: US-PFIZER INC-2020322424

PATIENT
  Age: 79 Year
  Sex: Male
  Weight: 64.41 kg

DRUGS (4)
  1. SUTENT [Suspect]
     Active Substance: SUNITINIB MALATE
     Indication: Gastrointestinal stromal tumour
     Dosage: 37.5 MG, CYCLIC (TAKE ONCE A DAY FOR 28 DAYS AND RESTART AFTER 14 DAYS)
     Route: 048
     Dates: start: 20200613, end: 20200917
  2. FERROUS SULFATE [Concomitant]
     Active Substance: FERROUS SULFATE
     Indication: Mineral supplementation
     Dosage: 325 MG, 1X/DAY
     Route: 048
  3. METOPROLOL [Concomitant]
     Active Substance: METOPROLOL
     Indication: Tachycardia
     Dosage: UNK, 2X/DAY (HALF OF A 25MG TABLET,)
     Route: 048
  4. CARAFATE [Concomitant]
     Active Substance: SUCRALFATE
     Indication: Gastric disorder
     Dosage: 1 G, 3X/DAY
     Route: 048

REACTIONS (4)
  - Death [Fatal]
  - Neoplasm progression [Unknown]
  - Weight increased [Unknown]
  - Product dose omission issue [Unknown]

NARRATIVE: CASE EVENT DATE: 20200818
